FAERS Safety Report 19441814 (Version 1)
Quarter: 2021Q2

REPORT INFORMATION
  Report Type: Spontaneous
  Country: US (occurrence: US)
  Receive Date: 20210621
  Receipt Date: 20210621
  Transmission Date: 20210717
  Serious: Yes (Death, Other)
  Sender: FDA-Public Use
  Company Number: US-BAYER-2021-155744

PATIENT
  Age: 47 Year
  Sex: Male

DRUGS (7)
  1. GILTERITINIB [Suspect]
     Active Substance: GILTERITINIB
  2. CYTARABINE. [Suspect]
     Active Substance: CYTARABINE
  3. FLAG?IDA [Suspect]
     Active Substance: CYTARABINE\FLUDARABINE\GRANULOCYTE COLONY-STIMULATING FACTOR NOS\IDARUBICIN
  4. IDARUBICINE [Suspect]
     Active Substance: IDARUBICIN
  5. CLADRIBINE. [Suspect]
     Active Substance: CLADRIBINE
  6. DECITABINE. [Suspect]
     Active Substance: DECITABINE
  7. SORAFENIB (RAF KINASE INHIBITOR) [Suspect]
     Active Substance: SORAFENIB
     Indication: ACUTE MYELOID LEUKAEMIA
     Dosage: UNK

REACTIONS (3)
  - Infection [Fatal]
  - Acute myeloid leukaemia [None]
  - Off label use [None]
